FAERS Safety Report 18221391 (Version 3)
Quarter: 2021Q1

REPORT INFORMATION
  Report Type: Spontaneous
  Country: US (occurrence: US)
  Receive Date: 20200902
  Receipt Date: 20210211
  Transmission Date: 20210419
  Serious: Yes (Death)
  Sender: FDA-Public Use
  Company Number: US-PFIZER INC-2020337658

PATIENT
  Age: 80 Year
  Sex: Male

DRUGS (2)
  1. INLYTA [Suspect]
     Active Substance: AXITINIB
     Dosage: 1 MG
  2. INLYTA [Suspect]
     Active Substance: AXITINIB
     Dosage: 5 MG

REACTIONS (3)
  - Hypoacusis [Unknown]
  - Decreased appetite [Unknown]
  - Death [Fatal]

NARRATIVE: CASE EVENT DATE: 20210101
